FAERS Safety Report 6803645-4 (Version None)
Quarter: 2010Q2

REPORT INFORMATION
  Report Type: 
  Country: None (occurrence: None)
  Receive Date: 20100628
  Receipt Date: 20100623
  Transmission Date: 20101027
  Serious: Yes (Hospitalization)
  Sender: FDA-Public Use
  Company Number: DE-BRISTOL-MYERS SQUIBB COMPANY-15141492

PATIENT
  Age: 42 Year
  Sex: Male
  Weight: 90 kg

DRUGS (14)
  1. ETOPOSIDE [Suspect]
     Indication: NON-SMALL CELL LUNG CANCER
     Route: 065
     Dates: start: 20100426, end: 20100526
  2. CISPLATIN [Suspect]
     Indication: NON-SMALL CELL LUNG CANCER
     Route: 065
     Dates: start: 20100426, end: 20100526
  3. RADIATION THERAPY [Suspect]
     Indication: NON-SMALL CELL LUNG CANCER
     Dosage: 1DF-2GY,FIVE DAYS A WEEK 40GY
     Route: 065
     Dates: start: 20100426, end: 20100525
  4. DURAGESIC-100 [Concomitant]
     Indication: PAIN
  5. VERGENTAN [Concomitant]
  6. MCP [Concomitant]
  7. FORTECORTIN [Concomitant]
  8. TOREM [Concomitant]
     Indication: OEDEMA
     Dates: start: 20100525, end: 20100525
  9. AMITRIPTYLINE HCL [Concomitant]
  10. CARBAMAZEPINE [Concomitant]
  11. SYMBICORT [Concomitant]
     Indication: DYSPNOEA
  12. PANTOZOL [Concomitant]
     Indication: PROPHYLAXIS
  13. ISONIAZID [Concomitant]
  14. PYRIDOXINE HCL [Concomitant]

REACTIONS (1)
  - GASTROINTESTINAL PERFORATION [None]
